FAERS Safety Report 7557787-9 (Version None)
Quarter: 2011Q2

REPORT INFORMATION
  Report Type: 
  Country: None (occurrence: None)
  Receive Date: 20110620
  Receipt Date: 20110609
  Transmission Date: 20111010
  Serious: Yes (Other)
  Sender: FDA-Public Use
  Company Number: JP-PFIZER INC-2011049528

PATIENT
  Sex: Female

DRUGS (5)
  1. ISOSORBIDE DINITRATE [Concomitant]
     Indication: ANGINA PECTORIS
     Dosage: 40 MG, 1X/DAY
     Route: 065
  2. LOXOPROFEN SODIUM [Concomitant]
     Indication: BACK PAIN
     Dosage: 60 MG, 1X/DAY
     Route: 048
  3. AMLODIPINE [Suspect]
     Indication: HYPERTENSION
     Dosage: 5 MG, 1X/DAY
     Route: 048
     Dates: start: 20080711
  4. PAXIL [Suspect]
     Indication: ANGINA PECTORIS
     Dosage: 40 MG, 1X/DAY
     Route: 048
     Dates: end: 20080711
  5. ENALAPRIL MALEATE [Concomitant]
     Indication: HYPERTENSION
     Dosage: 5 MG, 1X/DAY
     Route: 048

REACTIONS (1)
  - PARKINSONISM [None]
